FAERS Safety Report 12599943 (Version 1)
Quarter: 2016Q3

REPORT INFORMATION
  Report Type: Spontaneous
  Country: US (occurrence: US)
  Receive Date: 20160727
  Receipt Date: 20160727
  Transmission Date: 20161109
  Serious: No
  Sender: FDA-Public Use
  Company Number: US-AKRIMAX-TIR-2016-0551

PATIENT
  Age: 65 Year
  Sex: Female

DRUGS (2)
  1. TIROSINT [Suspect]
     Active Substance: LEVOTHYROXINE SODIUM
     Dosage: ONE CAPSULE AROUND 6:30 AM AND THE SECOND 50MCG CAPSULE AROUND 5:30 PM EACH DAY
     Route: 048
     Dates: start: 2016
  2. TIROSINT [Suspect]
     Active Substance: LEVOTHYROXINE SODIUM
     Indication: HYPOTHYROIDISM
     Dosage: TWO 50MCG CAPSULES EACH MORNING
     Route: 048
     Dates: start: 2016

REACTIONS (3)
  - Drug level above therapeutic [Recovered/Resolved]
  - Asthma [Unknown]
  - Seasonal allergy [Unknown]

NARRATIVE: CASE EVENT DATE: 2016
